FAERS Safety Report 4646527-9 (Version None)
Quarter: 2005Q2

REPORT INFORMATION
  Report Type: 
  Country: None (occurrence: None)
  Receive Date: 20050427
  Receipt Date: 20040818
  Transmission Date: 20051028
  Serious: No
  Sender: FDA-Public Use
  Company Number: US-JNJFO-20040701346

PATIENT
  Age: 86 Year
  Sex: Female

DRUGS (5)
  1. FLOVENT [Suspect]
     Indication: INFECTION PROPHYLAXIS
     Dosage: 1PUFF PER DAY
     Route: 055
     Dates: start: 20021001
  2. EXTRA STRENGTH TYLENOL [Suspect]
     Indication: ARTHRITIS
     Dosage: 1000MG TWICE PER DAY
     Route: 048
     Dates: start: 20030625
  3. ALBUTEROL [Concomitant]
     Dosage: 1PUFF AS REQUIRED
  4. VITAMINS [Concomitant]
     Dosage: 1TAB PER DAY
  5. TRILISATE [Concomitant]
     Dosage: 750MG TWICE PER DAY

REACTIONS (5)
  - DRUG INTERACTION [None]
  - EYE SWELLING [None]
  - FLUSHING [None]
  - PRURITUS [None]
  - RASH ERYTHEMATOUS [None]
